FAERS Safety Report 22106521 (Version 1)
Quarter: 2023Q1

REPORT INFORMATION
  Report Type: Spontaneous
  Country: US (occurrence: US)
  Receive Date: 20230317
  Receipt Date: 20230317
  Transmission Date: 20230417
  Serious: No
  Sender: FDA-Public Use
  Company Number: US-SANOFI-01525825

PATIENT
  Age: 77 Year
  Sex: Female

DRUGS (1)
  1. DUPIXENT [Suspect]
     Active Substance: DUPILUMAB
     Indication: Asthma
     Dosage: 300 MG, QOW
     Route: 058
     Dates: start: 20201201

REACTIONS (6)
  - Arthritis [Unknown]
  - Muscular weakness [Unknown]
  - Injection site pain [Unknown]
  - Accidental exposure to product [Unknown]
  - Inappropriate schedule of product administration [Unknown]
  - Therapeutic response unexpected [Unknown]
